FAERS Safety Report 13971332 (Version 1)
Quarter: 2017Q3

REPORT INFORMATION
  Report Type: Spontaneous
  Country: US (occurrence: US)
  Receive Date: 20170914
  Receipt Date: 20170914
  Transmission Date: 20171128
  Serious: No
  Sender: FDA-Public Use
  Company Number: US-ASTELLAS-2016US044044

PATIENT
  Sex: Male

DRUGS (2)
  1. XTANDI [Suspect]
     Active Substance: ENZALUTAMIDE
     Indication: PROSTATE CANCER
     Route: 048
     Dates: start: 20160806
  2. XTANDI [Suspect]
     Active Substance: ENZALUTAMIDE
     Dosage: 120 MG (3 CAPSULES), ONCE DAILY
     Route: 048

REACTIONS (7)
  - Blood pressure increased [Unknown]
  - Influenza [Recovered/Resolved]
  - Fatigue [Recovering/Resolving]
  - Dyspnoea [Recovered/Resolved]
  - Skin ulcer [Not Recovered/Not Resolved]
  - Somnolence [Unknown]
  - Impaired healing [Not Recovered/Not Resolved]
